FAERS Safety Report 9295654 (Version 1)
Quarter: 2013Q1

REPORT INFORMATION
  Report Type: Spontaneous
  Country: US (occurrence: None)
  Receive Date: 20130107
  Receipt Date: 20130107
  Transmission Date: 20140127
  Serious: Yes (Hospitalization, Other)
  Sender: FDA-Public Use
  Company Number: PHHY2012US101424

PATIENT
  Age: 63 Year
  Sex: Male

DRUGS (16)
  1. GILENYA [Suspect]
     Indication: MULTIPLE SCLEROSIS
     Route: 048
     Dates: start: 20110512
  2. CYMBALTA (DULOXETINE HYDROCHLORIDE) [Concomitant]
  3. LAMICTAL (LAMOTRIGINE) [Concomitant]
  4. CALTRATE (CALCIUM CARBONATE) [Concomitant]
  5. AMRIX (CYCLOBENZAPRINE HYDROCHLORIDE) [Concomitant]
  6. BONIVA (IBANDRONATE SODIUM) [Concomitant]
  7. ARICEPT (DONEPEZIL HYDROCHLORIDE) [Concomitant]
  8. IBUPROFEN (IBUPROFEN) [Concomitant]
  9. SYNTHROID (LEVOTHYROXINE SODIUM) [Concomitant]
  10. MULTIVITAMINS (ASCORBIC ACID, ERGOCALCIFEROL, FOLIC ACID, NICOTINAMIDE, PANTHENOL, RETINOL, RIBOFLAVIN, THIAMINE HYDROCHLORIDE) [Suspect]
  11. OMEGA 3 (FISH OIL) [Concomitant]
  12. ANDROGEL (TESTOSTERONE) [Concomitant]
  13. LEVOTHYROXINE (LEVOTHYROXINE) [Concomitant]
  14. CALCIUM (CALCIUM) [Concomitant]
  15. VITAMIN B COMPLEX (VITAMIN B COMPLEX) [Concomitant]
  16. VITAMIN D (ERGOCALCIFEROL) [Concomitant]

REACTIONS (24)
  - Monocyte count increased [None]
  - Albumin globulin ratio increased [None]
  - Blood urea nitrogen/creatinine ratio increased [None]
  - Blood calcium decreased [None]
  - Blood albumin decreased [None]
  - Globulins decreased [None]
  - Blood alkaline phosphatase increased [None]
  - Blood cholesterol increased [None]
  - Left ventricular hypertrophy [None]
  - Low density lipoprotein increased [None]
  - Oedema peripheral [None]
  - Fatigue [None]
  - Lymphocyte count decreased [None]
  - White blood cell count decreased [None]
  - Alanine aminotransferase increased [None]
  - Aspartate aminotransferase increased [None]
  - Back pain [None]
  - Hypertonia [None]
  - Central nervous system lesion [None]
  - Abasia [None]
  - Muscular weakness [None]
  - Gait disturbance [None]
  - Diastolic dysfunction [None]
  - Multiple sclerosis relapse [None]
